FAERS Safety Report 21311374 (Version 1)
Quarter: 2022Q3

REPORT INFORMATION
  Report Type: Spontaneous
  Country: GB (occurrence: GB)
  Receive Date: 20220909
  Receipt Date: 20220909
  Transmission Date: 20221026
  Serious: Yes (Hospitalization)
  Sender: FDA-Public Use
  Company Number: None

PATIENT
  Age: 71 Year
  Sex: Female
  Weight: 88 kg

DRUGS (4)
  1. ATORVASTATIN [Suspect]
     Active Substance: ATORVASTATIN
     Indication: Product used for unknown indication
     Dosage: UNK
     Route: 065
     Dates: start: 20220207
  2. CYANOCOBALAMIN [Concomitant]
     Active Substance: CYANOCOBALAMIN
     Indication: Ill-defined disorder
     Dosage: 3 DOSAGE FORM, TID (THREE TO BE TAKEN EACH DAY - UNTIL JULY 2020)
     Route: 065
     Dates: start: 20200207
  3. HYLO TEAR [Concomitant]
     Indication: Ill-defined disorder
     Dosage: UNK UNK, PRN (PRN AS DIRECTED BY OPTHALMOLOGY)
     Route: 065
     Dates: start: 20201030
  4. LISINOPRIL [Concomitant]
     Active Substance: LISINOPRIL
     Indication: Ill-defined disorder
     Dosage: 1 DOSAGE FORM, AM (ONE TO BE TAKEN IN THE MORNING)
     Route: 065
     Dates: start: 20201030

REACTIONS (1)
  - Jaundice [Recovering/Resolving]

NARRATIVE: CASE EVENT DATE: 20220609
